FAERS Safety Report 5743792-1 (Version None)
Quarter: 2008Q2

REPORT INFORMATION
  Report Type: 
  Country: None (occurrence: None)
  Receive Date: 20080516
  Receipt Date: 20080506
  Transmission Date: 20081010
  Serious: Yes (Other)
  Sender: FDA-Public Use
  Company Number: ADE2008-0198

PATIENT
  Weight: 2.3 kg

DRUGS (2)
  1. SERTRALINE [Suspect]
     Dosage: 50MGQD TRANSPLACENTAL
     Route: 064
     Dates: start: 20080101
  2. SERTRALINE [Suspect]
     Dosage: 100MGQD TRASNPLACENTAL
     Route: 064
     Dates: end: 20080408

REACTIONS (5)
  - EYE ROLLING [None]
  - MATERNAL DRUGS AFFECTING FOETUS [None]
  - MUSCLE TWITCHING [None]
  - PARTIAL SEIZURES [None]
  - SMALL FOR DATES BABY [None]
